FAERS Safety Report 23667308 (Version 2)
Quarter: 2024Q2

REPORT INFORMATION
  Report Type: Spontaneous
  Country: CN (occurrence: CN)
  Receive Date: 20240325
  Receipt Date: 20240418
  Transmission Date: 20240716
  Serious: Yes (Other)
  Sender: FDA-Public Use
  Company Number: CN-AMAROX PHARMA-HET2024CN00782

PATIENT
  Age: 2 Year
  Sex: Male

DRUGS (1)
  1. OSELTAMIVIR [Suspect]
     Active Substance: OSELTAMIVIR
     Indication: Bronchitis
     Dosage: 4.5 MILLILITER, TWICE DAILY
     Route: 048
     Dates: start: 20240308, end: 20240308

REACTIONS (2)
  - Rubella [Recovering/Resolving]
  - Rash [Recovering/Resolving]

NARRATIVE: CASE EVENT DATE: 20240309
